FAERS Safety Report 18822127 (Version 1)
Quarter: 2021Q1

REPORT INFORMATION
  Report Type: Spontaneous
  Country: US (occurrence: US)
  Receive Date: 20210201
  Receipt Date: 20210201
  Transmission Date: 20210419
  Serious: Yes (Hospitalization)
  Sender: FDA-Public Use
  Company Number: None

PATIENT
  Sex: Male

DRUGS (6)
  1. ABIRATERONE ACETATE 250MG TAB [Suspect]
     Active Substance: ABIRATERONE ACETATE
     Indication: PROSTATE CANCER
     Route: 048
     Dates: start: 20210108
  2. PREDNISONE. [Concomitant]
     Active Substance: PREDNISONE
  3. AMPICILLIN [Concomitant]
     Active Substance: AMPICILLIN
  4. ACETAMIN [Concomitant]
     Active Substance: ACETAMINOPHEN
  5. CEPHALEXIN. [Concomitant]
     Active Substance: CEPHALEXIN
  6. DOCUSATE SOD [Concomitant]

REACTIONS (1)
  - Urinary tract infection [None]
